FAERS Safety Report 5846377-1 (Version None)
Quarter: 2008Q3

REPORT INFORMATION
  Report Type: 
  Country: None (occurrence: None)
  Receive Date: 20080815
  Receipt Date: 20080806
  Transmission Date: 20090109
  Serious: Yes (Other)
  Sender: FDA-Public Use
  Company Number: US-BAYER-200815760NA

PATIENT
  Age: 19 Year
  Sex: Female
  Weight: 82 kg

DRUGS (2)
  1. MIRENA [Suspect]
     Indication: CONTRACEPTION
     Route: 015
     Dates: start: 20070801
  2. PRENATAL VITAMINS (NOS) [Concomitant]

REACTIONS (14)
  - ABDOMINAL PAIN LOWER [None]
  - AMENORRHOEA [None]
  - ASTHENIA [None]
  - DIARRHOEA [None]
  - DIZZINESS [None]
  - DYSURIA [None]
  - FATIGUE [None]
  - HYPOMENORRHOEA [None]
  - INTRA-UTERINE CONTRACEPTIVE DEVICE EXPELLED [None]
  - NAUSEA [None]
  - PELVIC INFLAMMATORY DISEASE [None]
  - PELVIC PAIN [None]
  - POST PROCEDURAL HAEMORRHAGE [None]
  - VAGINAL DISCHARGE [None]
